FAERS Safety Report 21334596 (Version 1)
Quarter: 2022Q3

REPORT INFORMATION
  Report Type: Spontaneous
  Country: IN (occurrence: IN)
  Receive Date: 20220914
  Receipt Date: 20220914
  Transmission Date: 20221026
  Serious: Yes (Hospitalization)
  Sender: FDA-Public Use
  Company Number: IN-MYLANLABS-2022M1093485

PATIENT
  Age: 72 Year
  Sex: Male

DRUGS (2)
  1. METHOTREXATE [Suspect]
     Active Substance: METHOTREXATE
     Indication: Arthritis reactive
     Dosage: 20 MILLIGRAM, QW
     Route: 065
     Dates: start: 201708
  2. PREDNISONE [Concomitant]
     Active Substance: PREDNISONE
     Indication: Arthritis reactive
     Dosage: 0.5 MICROGRAM/KILOGRAM
     Route: 065
     Dates: start: 201708

REACTIONS (2)
  - Hypercalcaemia [Recovered/Resolved]
  - Pneumonitis [Recovering/Resolving]

NARRATIVE: CASE EVENT DATE: 20171001
